FAERS Safety Report 17787298 (Version 1)
Quarter: 2020Q2

REPORT INFORMATION
  Report Type: Spontaneous
  Country: US (occurrence: US)
  Receive Date: 20200514
  Receipt Date: 20200514
  Transmission Date: 20200714
  Serious: No
  Sender: FDA-Public Use
  Company Number: US-RIGEL PHARMACEUTICALS, INC.-2020FOS000157

PATIENT
  Sex: Female

DRUGS (4)
  1. TAVALISSE [Suspect]
     Active Substance: FOSTAMATINIB
     Dosage: 100 MG, BID
     Route: 048
     Dates: start: 2020, end: 20200326
  2. MULTIVITAMIN + MINERAL [Concomitant]
     Active Substance: MINERALS\VITAMINS
     Indication: PRODUCT USED FOR UNKNOWN INDICATION
     Dosage: UNK
  3. TAVALISSE [Suspect]
     Active Substance: FOSTAMATINIB
     Indication: THROMBOCYTOPENIA
     Dosage: 150 MG, BID
     Route: 048
     Dates: start: 20200327
  4. PROBIOTICS NOS [Concomitant]
     Active Substance: PROBIOTICS NOS
     Indication: PRODUCT USED FOR UNKNOWN INDICATION
     Dosage: UNK

REACTIONS (10)
  - Feeling abnormal [Unknown]
  - Blood pressure increased [Unknown]
  - Muscle spasms [Unknown]
  - Electrolyte imbalance [Unknown]
  - Abdominal pain upper [Unknown]
  - Diarrhoea [Unknown]
  - Off label use [Unknown]
  - Platelet count decreased [Recovering/Resolving]
  - Asthenia [Unknown]
  - Fatigue [Unknown]

NARRATIVE: CASE EVENT DATE: 2020
